FAERS Safety Report 5051063-4 (Version None)
Quarter: 2006Q3

REPORT INFORMATION
  Report Type: 
  Country: None (occurrence: None)
  Receive Date: 20060714
  Receipt Date: 20060710
  Transmission Date: 20061208
  Serious: Yes (Other)
  Sender: FDA-Public Use
  Company Number: PHEH2006US08810

PATIENT
  Age: 62 Year
  Sex: Female

DRUGS (2)
  1. DIOVAN HCT [Suspect]
     Indication: HYPERTENSION
     Dosage: 160MG VAL/12.5MG HCT, QD
     Dates: start: 20010101, end: 20060601
  2. DIOVAN HCT [Suspect]
     Dosage: 320MG VAL/25MG HCT, QD
     Dates: start: 20060601

REACTIONS (4)
  - BLOOD PRESSURE INADEQUATELY CONTROLLED [None]
  - CYSTITIS [None]
  - RENAL PAIN [None]
  - URINARY RETENTION [None]
